FAERS Safety Report 5527593-5 (Version None)
Quarter: 2007Q4

REPORT INFORMATION
  Report Type: 
  Country: None (occurrence: None)
  Receive Date: 20071128
  Receipt Date: 20071119
  Transmission Date: 20080405
  Serious: Yes (Death, Hospitalization, Other)
  Sender: FDA-Public Use
  Company Number: US-ELI_LILLY_AND_COMPANY-US200711004418

PATIENT
  Sex: Female

DRUGS (3)
  1. FORTEO [Suspect]
     Indication: OSTEOPOROSIS
     Dates: start: 20070101
  2. PANCREASE [Concomitant]
  3. NEXIUM [Concomitant]

REACTIONS (8)
  - ACUTE MYOCARDIAL INFARCTION [None]
  - CARDIAC DISORDER [None]
  - CONFUSIONAL STATE [None]
  - DEATH [None]
  - PANCREATIC INSUFFICIENCY [None]
  - RED BLOOD CELL COUNT ABNORMAL [None]
  - THROMBOSIS [None]
  - WEIGHT DECREASED [None]
